FAERS Safety Report 10145449 (Version 1)
Quarter: 2014Q2

REPORT INFORMATION
  Report Type: Spontaneous
  Country: US (occurrence: US)
  Receive Date: 20140501
  Receipt Date: 20140501
  Transmission Date: 20141212
  Serious: No
  Sender: FDA-Public Use
  Company Number: US-009507513-1404USA015735

PATIENT
  Sex: Female

DRUGS (1)
  1. VICTRELIS [Suspect]
     Indication: HEPATITIS C
     Dosage: FOUR 200 MG CAPSULES EVERY 8 HOURS
     Route: 048
     Dates: start: 2012

REACTIONS (1)
  - Anaemia [Recovered/Resolved]
